FAERS Safety Report 9152070 (Version 1)
Quarter: 2013Q1

REPORT INFORMATION
  Report Type: Spontaneous
  Country: DE (occurrence: DE)
  Receive Date: 20130308
  Receipt Date: 20130308
  Transmission Date: 20140127
  Serious: Yes (Hospitalization, Other)
  Sender: FDA-Public Use
  Company Number: DE-ELI_LILLY_AND_COMPANY-DE201303000835

PATIENT
  Sex: Male

DRUGS (6)
  1. CIALIS [Suspect]
     Indication: ERECTILE DYSFUNCTION
     Dosage: 5 MG, PRN
     Route: 048
     Dates: start: 201210
  2. BISOPROLOL [Concomitant]
     Dosage: 5 MG, UNKNOWN
  3. XARELTO [Concomitant]
     Dosage: 20 MG, UNKNOWN
  4. METFORMIN [Concomitant]
     Dosage: 500 MG, UNKNOWN
  5. OMEP [Concomitant]
     Dosage: 20 MG, UNKNOWN
  6. ALLOPURINOL [Concomitant]
     Dosage: 100 MG, UNKNOWN

REACTIONS (3)
  - Atrial fibrillation [Not Recovered/Not Resolved]
  - Syncope [Not Recovered/Not Resolved]
  - Cardiac disorder [Not Recovered/Not Resolved]
